FAERS Safety Report 6229290-X (Version None)
Quarter: 2009Q2

REPORT INFORMATION
  Report Type: 
  Country: None (occurrence: None)
  Receive Date: 20090615
  Receipt Date: 20090605
  Transmission Date: 20091009
  Serious: Yes (Hospitalization, Other)
  Sender: FDA-Public Use
  Company Number: US-BAYER-200914899NA

PATIENT
  Sex: Male

DRUGS (6)
  1. CAMPATH [Suspect]
     Indication: CHRONIC LYMPHOCYTIC LEUKAEMIA
     Dosage: TOTAL DAILY DOSE: 30 MG  UNIT DOSE: 30 MG
     Dates: start: 20081201
  2. TYLENOL (CAPLET) [Concomitant]
  3. BENADRYL [Concomitant]
  4. STEROID NOS/CORTICOSTEROIDS [Concomitant]
  5. VALCYTE [Concomitant]
  6. BACTRIM [Concomitant]

REACTIONS (6)
  - ASTHENIA [None]
  - BLOOD COUNT ABNORMAL [None]
  - DECREASED APPETITE [None]
  - HAEMOGLOBIN DECREASED [None]
  - PYREXIA [None]
  - WEIGHT DECREASED [None]
